FAERS Safety Report 13541905 (Version 34)
Quarter: 2018Q3

REPORT INFORMATION
  Report Type: Report from Study
  Country: CA (occurrence: CA)
  Receive Date: 20170512
  Receipt Date: 20180924
  Transmission Date: 20181010
  Serious: Yes (Hospitalization, Other)
  Sender: FDA-Public Use
  Company Number: CA-BRISTOL-MYERS SQUIBB COMPANY-BMS-2017-039839

PATIENT
  Age: 40 Year
  Sex: Male

DRUGS (6)
  1. TRINTELLIX [Concomitant]
     Active Substance: VORTIOXETINE HYDROBROMIDE
     Indication: PRODUCT USED FOR UNKNOWN INDICATION
     Route: 065
  2. YERVOY [Suspect]
     Active Substance: IPILIMUMAB
     Indication: MALIGNANT MELANOMA
     Dosage: 3 MG/KG, UNK
     Route: 042
     Dates: start: 20170419, end: 201706
  3. ROSUVASTATIN. [Concomitant]
     Active Substance: ROSUVASTATIN
     Indication: PRODUCT USED FOR UNKNOWN INDICATION
     Route: 065
  4. SUBLINOX [Concomitant]
     Active Substance: ZOLPIDEM TARTRATE
     Indication: PRODUCT USED FOR UNKNOWN INDICATION
     Route: 065
  5. SYNTHROID [Concomitant]
     Active Substance: LEVOTHYROXINE SODIUM
     Indication: PRODUCT USED FOR UNKNOWN INDICATION
     Route: 065
  6. NIVOLUMAB [Suspect]
     Active Substance: NIVOLUMAB
     Indication: MALIGNANT MELANOMA
     Dosage: 3 MG/KG, Q2WK
     Route: 042
     Dates: start: 20170419

REACTIONS (37)
  - Decreased appetite [Recovering/Resolving]
  - Thyroid function test abnormal [Not Recovered/Not Resolved]
  - Oedema [Unknown]
  - Eczema [Not Recovered/Not Resolved]
  - Frequent bowel movements [Unknown]
  - Blood thyroid stimulating hormone decreased [Unknown]
  - Thyroxine decreased [Not Recovered/Not Resolved]
  - Blood test abnormal [Unknown]
  - Headache [Recovering/Resolving]
  - Dyspnoea [Not Recovered/Not Resolved]
  - Hot flush [Unknown]
  - Dry mouth [Not Recovered/Not Resolved]
  - Pyrexia [Recovering/Resolving]
  - Dry skin [Unknown]
  - Nausea [Recovering/Resolving]
  - Depression [Not Recovered/Not Resolved]
  - Tooth infection [Recovering/Resolving]
  - Musculoskeletal stiffness [Recovering/Resolving]
  - Prescribed overdose [Unknown]
  - Monocyte count increased [Unknown]
  - Somnolence [Unknown]
  - Hepatitis [Recovered/Resolved]
  - Appetite disorder [Not Recovered/Not Resolved]
  - Fatigue [Not Recovered/Not Resolved]
  - Toothache [Unknown]
  - Anxiety [Not Recovered/Not Resolved]
  - Off label use [Unknown]
  - Blood thyroid stimulating hormone increased [Not Recovered/Not Resolved]
  - Tri-iodothyronine decreased [Not Recovered/Not Resolved]
  - Blood chloride increased [Unknown]
  - Diarrhoea [Recovering/Resolving]
  - Libido decreased [Recovering/Resolving]
  - Pain [Not Recovered/Not Resolved]
  - Hypothyroidism [Unknown]
  - Vitiligo [Unknown]
  - Blood magnesium increased [Unknown]
  - Euphoric mood [Not Recovered/Not Resolved]

NARRATIVE: CASE EVENT DATE: 20170421
